FAERS Safety Report 6911863-X (Version None)
Quarter: 2010Q3

REPORT INFORMATION
  Report Type: 
  Country: None (occurrence: None)
  Receive Date: 20100806
  Receipt Date: 20070817
  Transmission Date: 20110219
  Serious: No
  Sender: FDA-Public Use
  Company Number: US-PFIZER INC-2007029308

PATIENT
  Sex: Male

DRUGS (3)
  1. VFEND [Suspect]
     Indication: PULMONARY MYCOSIS
     Route: 048
  2. IMIPENEM [Concomitant]
     Route: 042
  3. ALL OTHER THERAPEUTIC PRODUCTS [Concomitant]

REACTIONS (1)
  - PHOTOSENSITIVITY REACTION [None]
